FAERS Safety Report 9525687 (Version 4)
Quarter: 2014Q1

REPORT INFORMATION
  Report Type: Spontaneous
  Country: US (occurrence: US)
  Receive Date: 20130916
  Receipt Date: 20140124
  Transmission Date: 20141002
  Serious: Yes (Hospitalization, Other)
  Sender: FDA-Public Use
  Company Number: US-TAKEDA-TPA2013A07091

PATIENT
  Sex: 0

DRUGS (19)
  1. ACTOS [Suspect]
     Indication: TYPE 2 DIABETES MELLITUS
     Dosage: 15 MG, UNK
     Dates: start: 20090417, end: 201203
  2. METFORMIN [Concomitant]
     Indication: TYPE 2 DIABETES MELLITUS
     Dosage: 1500 MG, QAM
  3. METFORMIN [Concomitant]
     Dosage: 1000 MG QPM
  4. METOPROLOL [Concomitant]
     Indication: HYPERTENSION
  5. CHLORTHALIDONE [Concomitant]
     Indication: HYPERTENSION
  6. LISINOPRIL [Concomitant]
     Indication: HYPERTENSION
     Dosage: 10 MG, UNK
  7. PRAVASTATIN [Concomitant]
     Indication: BLOOD CHOLESTEROL INCREASED
  8. TOPROL XL [Concomitant]
     Dosage: 25 MG, UNK
  9. LASIX                              /00032601/ [Concomitant]
     Dosage: 20 MG, UNK
  10. ROSUVASTATIN [Concomitant]
     Dosage: 20 MG, UNK
  11. CLOPIDOGREL [Concomitant]
     Dosage: 75 MG, UNK
  12. QUETIAPINE [Concomitant]
     Dosage: 300 MG, UNK
  13. NITROGLYCERIN [Concomitant]
     Dosage: 0.4 MG, PRN
  14. ASPIRIN [Concomitant]
     Dosage: 81 MG, UNK
     Dates: start: 20090602, end: 20090913
  15. PROZAC                             /00724401/ [Concomitant]
     Dosage: 20 MG, QD
     Dates: start: 20090523
  16. FLUOXETINE [Concomitant]
     Dosage: 20 MG, QD 2 CAP EVERY MORNING
  17. GLIPIZIDE [Concomitant]
     Indication: DIABETES MELLITUS
     Dosage: 10 MG, QD 2 TIMES A DAY
     Route: 048
  18. NIACIN [Concomitant]
     Indication: BLOOD CHOLESTEROL
     Dosage: 500 MG, QPM
  19. VARDENAFIL [Concomitant]

REACTIONS (8)
  - Coronary artery disease [Unknown]
  - Bladder transitional cell carcinoma [Unknown]
  - Dysuria [Unknown]
  - Muscle spasms [Unknown]
  - Chest pain [Unknown]
  - Drug ineffective [Unknown]
  - Myalgia [Unknown]
  - Headache [Unknown]
